FAERS Safety Report 14688707 (Version 1)
Quarter: 2018Q1

REPORT INFORMATION
  Report Type: Spontaneous
  Country: US (occurrence: US)
  Receive Date: 20180326
  Receipt Date: 20180326
  Transmission Date: 20180509
  Serious: No
  Sender: FDA-Public Use
  Company Number: None

PATIENT
  Age: 28 Year
  Sex: Female

DRUGS (2)
  1. DAPTOMYCIN 100 MG PFIZER [Suspect]
     Active Substance: DAPTOMYCIN
     Indication: STAPHYLOCOCCAL INFECTION
     Dosage: 316 MG ONCE DAILY IV PUSH
     Route: 040
     Dates: start: 20180309, end: 20180318
  2. DAPTOMYCIN 100 MG PFIZER [Suspect]
     Active Substance: DAPTOMYCIN
     Indication: URINARY TRACT INFECTION
     Dosage: 316 MG ONCE DAILY IV PUSH
     Route: 040
     Dates: start: 20180309, end: 20180318

REACTIONS (1)
  - Infusion related reaction [None]

NARRATIVE: CASE EVENT DATE: 20180315
